FAERS Safety Report 21133284 (Version 1)
Quarter: 2022Q3

REPORT INFORMATION
  Report Type: Spontaneous
  Country: US (occurrence: US)
  Receive Date: 20220726
  Receipt Date: 20220726
  Transmission Date: 20221027
  Serious: No
  Sender: FDA-Public Use
  Company Number: US-PFIZER INC-202201002234

PATIENT
  Age: 49 Year
  Sex: Female
  Weight: 74.39 kg

DRUGS (5)
  1. PAXLOVID [Suspect]
     Active Substance: NIRMATRELVIR\RITONAVIR
     Indication: COVID-19 treatment
     Dosage: UNK
     Dates: start: 202207
  2. ROBITUSSIN (GUAIFENESIN) [Suspect]
     Active Substance: GUAIFENESIN
     Indication: Cough
     Dosage: UNK
     Dates: start: 202207
  3. ALBUTEROL [Concomitant]
     Active Substance: ALBUTEROL
     Dosage: UNK
  4. IBUPROFEN [Concomitant]
     Active Substance: IBUPROFEN
     Indication: Myalgia
     Dosage: UNK
  5. LEVOTHYROXINE SODIUM [Concomitant]
     Active Substance: LEVOTHYROXINE SODIUM
     Dosage: UNK

REACTIONS (7)
  - Anxiety [Unknown]
  - Dysphonia [Unknown]
  - Arthralgia [Unknown]
  - Hypertension [Recovering/Resolving]
  - Fear [Unknown]
  - Headache [Unknown]
  - Myalgia [Unknown]

NARRATIVE: CASE EVENT DATE: 20220701
